FAERS Safety Report 10378935 (Version 1)
Quarter: 2014Q3

REPORT INFORMATION
  Report Type: Spontaneous
  Country: US (occurrence: None)
  Receive Date: 20140811
  Receipt Date: 20140811
  Transmission Date: 20150326
  Serious: No
  Sender: FDA-Public Use
  Company Number: None

PATIENT
  Age: 59 Year
  Sex: Female
  Weight: 127.01 kg

DRUGS (1)
  1. ENBREL [Suspect]
     Active Substance: ETANERCEPT
     Indication: RHEUMATOID ARTHRITIS
     Dosage: 1 PEN 50MG?1 PER WEEK ?GIVEN INTO/UNDER THE SKIN?
     Dates: start: 20140711

REACTIONS (7)
  - Vomiting [None]
  - Dizziness [None]
  - Hyperhidrosis [None]
  - Malaise [None]
  - Nausea [None]
  - Muscular weakness [None]
  - Diarrhoea [None]

NARRATIVE: CASE EVENT DATE: 20140809
